FAERS Safety Report 5143826-1 (Version None)
Quarter: 2006Q4

REPORT INFORMATION
  Report Type: 
  Country: None (occurrence: None)
  Receive Date: 20061102
  Receipt Date: 20061102
  Transmission Date: 20070319
  Serious: Yes (Other)
  Sender: FDA-Public Use
  Company Number: None

PATIENT
  Sex: Female

DRUGS (4)
  1. REVLIMID [Suspect]
     Indication: MULTIPLE MYELOMA
     Dosage: 25MG DAILY FOR 21 DAYS PO
     Route: 048
     Dates: start: 20060804, end: 20061018
  2. DEXAMETHASONE TAB [Concomitant]
  3. PROCRIT [Concomitant]
  4. LEVOTHROID [Concomitant]

REACTIONS (2)
  - NEUTROPHIL COUNT DECREASED [None]
  - THROMBOCYTOPENIA [None]
